FAERS Safety Report 25479352 (Version 1)
Quarter: 2025Q2

REPORT INFORMATION
  Report Type: Spontaneous
  Country: CN (occurrence: CN)
  Receive Date: 20250625
  Receipt Date: 20250625
  Transmission Date: 20250716
  Serious: Yes (Other)
  Sender: SANDOZ
  Company Number: CN-002147023-NVSC2025CN099300

PATIENT
  Age: 65 Year
  Sex: Male
  Weight: 60 kg

DRUGS (1)
  1. DEXAMETHASONE\TOBRAMYCIN [Suspect]
     Active Substance: DEXAMETHASONE\TOBRAMYCIN
     Indication: Symptomatic treatment
     Dosage: 1.000 DRP, QD
     Route: 047
     Dates: start: 20250613, end: 20250614

REACTIONS (10)
  - Corneal epithelium defect [Recovering/Resolving]
  - Keratic precipitates [Recovering/Resolving]
  - Lenticular opacities [Recovering/Resolving]
  - Eyelids pruritus [Recovering/Resolving]
  - Conjunctival hyperaemia [Recovering/Resolving]
  - Hyperplasia [Recovering/Resolving]
  - Corneal oedema [Recovering/Resolving]
  - Pupillary disorder [Recovering/Resolving]
  - Adhesion [Recovering/Resolving]
  - Hypersensitivity [Recovered/Resolved]

NARRATIVE: CASE EVENT DATE: 20250614
